FAERS Safety Report 23421197 (Version 1)
Quarter: 2024Q1

REPORT INFORMATION
  Report Type: Spontaneous
  Country: US (occurrence: US)
  Receive Date: 20240119
  Receipt Date: 20240119
  Transmission Date: 20240409
  Serious: Yes (Hospitalization)
  Sender: FDA-Public Use
  Company Number: US-MYLANLABS-2024M1005558

PATIENT
  Age: 72 Year
  Sex: Male

DRUGS (5)
  1. PREDNISONE [Suspect]
     Active Substance: PREDNISONE
     Indication: Paraneoplastic hypoglycaemia
     Dosage: 10 MILLIGRAM, BID
     Route: 065
  2. PREDNISONE [Suspect]
     Active Substance: PREDNISONE
     Dosage: 20 MILLIGRAM, BID
     Route: 065
  3. DEXTROSE [Suspect]
     Active Substance: DEXTROSE\DEXTROSE MONOHYDRATE
     Indication: Paraneoplastic hypoglycaemia
     Dosage: UNK (INTRAVENOUS INFUSION)
     Route: 042
  4. DEXTROSE [Suspect]
     Active Substance: DEXTROSE\DEXTROSE MONOHYDRATE
     Indication: Paraneoplastic hypoglycaemia
     Dosage: 37.5 GRAM, Q3H
     Route: 065
  5. DIAZOXIDE [Suspect]
     Active Substance: DIAZOXIDE
     Indication: Paraneoplastic hypoglycaemia
     Dosage: RECEIVED UNDER A TRIAL
     Route: 065

REACTIONS (1)
  - Drug ineffective [Unknown]
